FAERS Safety Report 20986275 (Version 1)
Quarter: 2022Q2

REPORT INFORMATION
  Report Type: Spontaneous
  Country: US (occurrence: None)
  Receive Date: 20220617
  Receipt Date: 20220617
  Transmission Date: 20220721
  Serious: No
  Sender: FDA-Public Use
  Company Number: None

PATIENT
  Age: 69 Year
  Sex: Female

DRUGS (1)
  1. ENBREL [Suspect]
     Active Substance: ETANERCEPT
     Dosage: OTHER FREQUENCY : OTHER;?
     Route: 058
     Dates: start: 201702

REACTIONS (2)
  - Myocardial infarction [None]
  - Oedema peripheral [None]

NARRATIVE: CASE EVENT DATE: 20220610
